FAERS Safety Report 8567841-0 (Version None)
Quarter: 2012Q3

REPORT INFORMATION
  Report Type: 
  Country: None (occurrence: None)
  Receive Date: 20120803
  Receipt Date: 20120725
  Transmission Date: 20120928
  Serious: Yes (Hospitalization)
  Sender: FDA-Public Use
  Company Number: US-ASTRAZENECA-2012SE51329

PATIENT
  Age: 26483 Day
  Sex: Female

DRUGS (16)
  1. METOCLOPRAMIDE HYDROCHLORIDE [Concomitant]
     Indication: GASTROOESOPHAGEAL REFLUX DISEASE
     Route: 048
  2. TRAZODONE HYDROCHLORIDE [Concomitant]
     Indication: DEPRESSION
     Route: 048
  3. CARAFATE [Concomitant]
     Indication: GASTROOESOPHAGEAL REFLUX DISEASE
     Route: 048
  4. METFORMIN HYDROCHLORIDE [Suspect]
     Indication: TYPE 2 DIABETES MELLITUS
     Route: 048
  5. ASPIRIN [Suspect]
     Route: 048
     Dates: end: 20120205
  6. CELEXA [Suspect]
     Indication: DEPRESSION
     Route: 048
  7. FOLIC ACID [Concomitant]
     Indication: VITAMIN SUPPLEMENTATION
     Route: 048
  8. NEXIUM [Concomitant]
     Indication: GASTROOESOPHAGEAL REFLUX DISEASE
     Route: 048
  9. TOPROL-XL [Suspect]
     Indication: HYPERTENSION
     Route: 048
  10. COZAAR [Suspect]
     Indication: HYPERTENSION
     Route: 048
  11. BUSPAR [Suspect]
     Indication: ANXIETY
     Route: 048
  12. SYNTHROID [Concomitant]
     Indication: HYPOTHYROIDISM
     Route: 048
  13. BRILINTA [Suspect]
     Indication: CORONARY ARTERY DISEASE
     Route: 048
     Dates: start: 20120206
  14. ASPIRIN [Suspect]
     Route: 048
     Dates: start: 20120206
  15. ATIVAN [Concomitant]
     Indication: ANXIETY
     Route: 048
  16. LIPITOR [Suspect]
     Indication: HYPERCHOLESTEROLAEMIA
     Route: 048

REACTIONS (1)
  - ANXIETY [None]
